FAERS Safety Report 9120416 (Version 1)
Quarter: 2013Q1

REPORT INFORMATION
  Report Type: Spontaneous
  Country: FR (occurrence: FR)
  Receive Date: 20130226
  Receipt Date: 20130226
  Transmission Date: 20140127
  Serious: Yes (Hospitalization)
  Sender: FDA-Public Use
  Company Number: PHHY2013FR018590

PATIENT
  Age: 46 Year
  Sex: Female

DRUGS (5)
  1. AMOXICILLIN+CLAVULANATE SANDOZ [Suspect]
     Indication: SIGMOIDITIS
     Dosage: UNK UKN, UNK
     Route: 048
     Dates: start: 20130208, end: 20130211
  2. AMOXICILLIN+CLAVULANATE [Suspect]
     Indication: SIGMOIDITIS
     Dosage: UNK UKN, UNK
     Route: 042
     Dates: start: 20130204, end: 20130207
  3. FLAGYL [Concomitant]
  4. ACUPAN [Concomitant]
  5. TRAMADOL [Concomitant]

REACTIONS (2)
  - Myalgia [Recovered/Resolved]
  - Pain in extremity [Recovered/Resolved]
